FAERS Safety Report 8621542-9 (Version None)
Quarter: 2012Q3

REPORT INFORMATION
  Report Type: 
  Country: None (occurrence: None)
  Receive Date: 20120824
  Receipt Date: 20120817
  Transmission Date: 20120928
  Serious: Yes (Other)
  Sender: FDA-Public Use
  Company Number: CHPA2012US018411

PATIENT
  Sex: Female

DRUGS (1)
  1. MYOFLEX ANALGESIC CREME [Suspect]
     Indication: BACK PAIN
     Dosage: 2 DF, PRN
     Route: 061
     Dates: start: 20060101

REACTIONS (5)
  - INTERVERTEBRAL DISC DEGENERATION [None]
  - BACK PAIN [None]
  - FOOT FRACTURE [None]
  - INTERVERTEBRAL DISC PROTRUSION [None]
  - OFF LABEL USE [None]
